FAERS Safety Report 24841959 (Version 1)
Quarter: 2025Q1

REPORT INFORMATION
  Report Type: Spontaneous
  Country: GR (occurrence: GR)
  Receive Date: 20250114
  Receipt Date: 20250114
  Transmission Date: 20250409
  Serious: Yes (Life-Threatening, Hospitalization, Other)
  Sender: MERCK
  Company Number: GR-009507513-2411GRC006537

PATIENT
  Age: 75 Year
  Sex: Male
  Weight: 67 kg

DRUGS (9)
  1. KEYTRUDA [Suspect]
     Active Substance: PEMBROLIZUMAB
     Indication: Renal cell carcinoma
     Dosage: 200 MILLIGRAM, Q3W
     Route: 042
     Dates: start: 20241009, end: 20241031
  2. KEYTRUDA [Suspect]
     Active Substance: PEMBROLIZUMAB
     Indication: Renal cancer
  3. OZEMPIC [Concomitant]
     Active Substance: SEMAGLUTIDE
  4. GLICLAZIDE [Concomitant]
     Active Substance: GLICLAZIDE
  5. DAPAGLIFLOZIN [Concomitant]
     Active Substance: DAPAGLIFLOZIN
  6. ASPIRIN [Concomitant]
     Active Substance: ASPIRIN
  7. NORVASC [Concomitant]
     Active Substance: AMLODIPINE BESYLATE
  8. NEBIVOLOL HYDROCHLORIDE [Concomitant]
     Active Substance: NEBIVOLOL HYDROCHLORIDE
  9. EZETIMIBE\SIMVASTATIN [Concomitant]
     Active Substance: EZETIMIBE\SIMVASTATIN

REACTIONS (7)
  - Muscular weakness [Recovering/Resolving]
  - Eyelid ptosis [Recovering/Resolving]
  - Myocarditis [Recovering/Resolving]
  - Blood creatine phosphokinase increased [Recovering/Resolving]
  - Troponin increased [Recovering/Resolving]
  - Myositis [Unknown]
  - Inappropriate schedule of product administration [Unknown]

NARRATIVE: CASE EVENT DATE: 20240101
